FAERS Safety Report 20939021 (Version 1)
Quarter: 2022Q2

REPORT INFORMATION
  Report Type: Spontaneous
  Country: US (occurrence: US)
  Receive Date: 20220609
  Receipt Date: 20220609
  Transmission Date: 20220720
  Serious: No
  Sender: FDA-Public Use
  Company Number: US-BRISTOL-MYERS SQUIBB COMPANY-2022-049244

PATIENT
  Age: 71 Year
  Sex: Male

DRUGS (1)
  1. REVLIMID [Suspect]
     Active Substance: LENALIDOMIDE
     Indication: Plasma cell myeloma
     Dosage: FREQ: 1 TAKE ONE CAPSULE BY MOUTH EVERY DAY FOR 21 DAYS FOLLOWED BY SEVEN DAYS OFF DO NOT YOU BREAK
     Route: 048
     Dates: start: 20190219

REACTIONS (1)
  - Pollakiuria [Unknown]
